FAERS Safety Report 13609233 (Version 1)
Quarter: 2017Q2

REPORT INFORMATION
  Report Type: Spontaneous
  Country: US (occurrence: US)
  Receive Date: 20170602
  Receipt Date: 20170602
  Transmission Date: 20170830
  Serious: No
  Sender: FDA-Public Use
  Company Number: US-APOTEX-2016AP007370

PATIENT
  Sex: Male

DRUGS (1)
  1. NICOTINE TRANSDERMAL SYSTEM [Suspect]
     Active Substance: NICOTINE
     Indication: SMOKING CESSATION THERAPY
     Dosage: 2 DF, QD
     Route: 062
     Dates: end: 20150706

REACTIONS (6)
  - Irritability [Recovering/Resolving]
  - Blood pressure increased [Recovering/Resolving]
  - Mania [Recovering/Resolving]
  - Nightmare [Recovering/Resolving]
  - Weight decreased [Recovering/Resolving]
  - Sleep disorder [Recovering/Resolving]
